FAERS Safety Report 24985269 (Version 1)
Quarter: 2025Q1

REPORT INFORMATION
  Report Type: Spontaneous
  Country: US (occurrence: US)
  Receive Date: 20250219
  Receipt Date: 20250219
  Transmission Date: 20250408
  Serious: Yes (Other)
  Sender: OCTAPHARMA
  Company Number: US-OCTA-2025000115

PATIENT
  Age: 71 Year
  Sex: Male

DRUGS (1)
  1. PANZYGA [Suspect]
     Active Substance: HUMAN IMMUNOGLOBULIN G
     Indication: Stiff person syndrome
     Route: 042
     Dates: start: 20250210, end: 20250210

REACTIONS (2)
  - Urticaria [Recovered/Resolved]
  - Blister [Recovered/Resolved]

NARRATIVE: CASE EVENT DATE: 20250210
